FAERS Safety Report 25077996 (Version 1)
Quarter: 2025Q1

REPORT INFORMATION
  Report Type: Spontaneous
  Country: CH (occurrence: CH)
  Receive Date: 20250314
  Receipt Date: 20250314
  Transmission Date: 20250408
  Serious: Yes (Other)
  Sender: CHEPLAPHARM
  Company Number: None

PATIENT
  Age: 69 Year
  Sex: Male

DRUGS (10)
  1. OLANZAPINE [Suspect]
     Active Substance: OLANZAPINE
     Dosage: 5 MG 1X/D ?DAILY DOSE: 5 MILLIGRAM
     Dates: start: 202412
  2. METOPROLOL [Suspect]
     Active Substance: METOPROLOL
     Dosage: 100 MG 1X/D ?DAILY DOSE: 100 MILLIGRAM
  3. NEXIUM [Suspect]
     Active Substance: ESOMEPRAZOLE MAGNESIUM
     Dosage: 20 MG 1X/D?DAILY DOSE: 20 MILLIGRAM
     Dates: end: 20250204
  4. CIPROFLOXACIN [Suspect]
     Active Substance: CIPROFLOXACIN
     Dates: start: 20250131, end: 20250203
  5. CEFTRIAXONE [Concomitant]
     Active Substance: CEFTRIAXONE
     Dosage: 2 G 1X/24H ?DAILY DOSE: 2 GRAM
     Dates: start: 20250203
  6. ASPIRIN [Concomitant]
     Active Substance: ASPIRIN
     Dosage: 100 MG 1X/D ?DAILY DOSE: 100 MILLIGRAM
  7. EUTHYROX [Concomitant]
     Active Substance: LEVOTHYROXINE SODIUM
     Dosage: 175 MICROG 1X/D ?DAILY DOSE: 175 MICROGRAM
  8. LOSARTAN POTASSIUM [Concomitant]
     Active Substance: LOSARTAN POTASSIUM
     Dosage: 50 MG 1X/D?DAILY DOSE: 50 MILLIGRAM
  9. ONDANSETRON [Concomitant]
     Active Substance: ONDANSETRON
     Dates: start: 20250206
  10. TRAMADOL [Concomitant]
     Active Substance: TRAMADOL
     Dates: start: 20250206

REACTIONS (2)
  - Cholestatic liver injury [Not Recovered/Not Resolved]
  - Disseminated Bacillus Calmette-Guerin infection [Not Recovered/Not Resolved]

NARRATIVE: CASE EVENT DATE: 20250203
